FAERS Safety Report 22001344 (Version 1)
Quarter: 2023Q1

REPORT INFORMATION
  Report Type: Spontaneous
  Country: SK (occurrence: SK)
  Receive Date: 20230216
  Receipt Date: 20230216
  Transmission Date: 20230417
  Serious: Yes (Other)
  Sender: FDA-Public Use
  Company Number: SK-KRKA-SK2023K00957LIT

PATIENT
  Age: 19 Year
  Sex: Male

DRUGS (4)
  1. OLANZAPINE [Suspect]
     Active Substance: OLANZAPINE
     Indication: Acute psychosis
     Dosage: 15 MILLIGRAM, PER DAY
     Route: 065
  2. MIRTAZAPINE [Suspect]
     Active Substance: MIRTAZAPINE
     Indication: Acute psychosis
     Dosage: 7.5 MILLIGRAM, PER DAY IN THE EVENING
     Route: 065
  3. PALIPERIDONE [Suspect]
     Active Substance: PALIPERIDONE
     Indication: Acute psychosis
     Dosage: 6 MILLIGRAM, PER DAY IN THE MORNING
     Route: 065
  4. PALIPERIDONE [Suspect]
     Active Substance: PALIPERIDONE
     Dosage: 9 MILLIGRAM, PER DAY
     Route: 048

REACTIONS (7)
  - Hyperprolactinaemia [Unknown]
  - Psychosexual disorder [Unknown]
  - Somnolence [Recovered/Resolved]
  - Insomnia [Unknown]
  - Akathisia [Unknown]
  - Sedation [Unknown]
  - Weight increased [Recovered/Resolved]
